FAERS Safety Report 17690098 (Version 1)
Quarter: 2020Q2

REPORT INFORMATION
  Report Type: Spontaneous
  Country: US (occurrence: US)
  Receive Date: 20200420
  Receipt Date: 20200420
  Transmission Date: 20200714
  Serious: Yes (Hospitalization)
  Sender: FDA-Public Use
  Company Number: None

PATIENT
  Sex: Female

DRUGS (2)
  1. SILDENAFIL SUSPENSION 10MG/ML GREENSTONE [Suspect]
     Active Substance: SILDENAFIL
     Indication: CARDIAC MURMUR
     Dosage: ?          OTHER ROUTE:J-TUBE?
     Dates: start: 20200128
  2. SILDENAFIL SUSPENSION 10MG/ML GREENSTONE [Suspect]
     Active Substance: SILDENAFIL
     Indication: DOUBLE OUTLET RIGHT VENTRICLE
     Dosage: ?          OTHER ROUTE:J-TUBE?
     Dates: start: 20200128

REACTIONS (1)
  - Lymphoedema [None]
